FAERS Safety Report 4897699-2 (Version None)
Quarter: 2006Q1

REPORT INFORMATION
  Report Type: 
  Country: None (occurrence: None)
  Receive Date: 20060130
  Receipt Date: 20060130
  Transmission Date: 20060701
  Serious: Yes (Life-Threatening)
  Sender: FDA-Public Use
  Company Number: None

PATIENT
  Age: 88 Year
  Sex: Male

DRUGS (18)
  1. HEPARIN [Suspect]
     Indication: ANGIOPLASTY
     Dosage: 1620 UNITS/HR
     Dates: start: 20051108, end: 20051111
  2. ACETYLCYSTEINE SOLN INHL/ORAL [Concomitant]
  3. ASPIRIN [Concomitant]
  4. CLOPIDOGREL BISULFATE [Concomitant]
  5. ENALAPRIL MALEATE [Concomitant]
  6. FELODIPINE SA [Concomitant]
  7. FINASTERIDE [Concomitant]
  8. HEPARIN [Concomitant]
  9. HEPARIN /SODIUM CHLORIDE [Concomitant]
  10. 45% NS [Concomitant]
  11. INSULIN 70/30-HUMAN [Concomitant]
  12. HUMULIN R [Concomitant]
  13. S.S. SLIDING SCALE [Concomitant]
  14. LEVOTHYROXINE SODIUM [Concomitant]
  15. METOPROLOL [Concomitant]
  16. MULTI-VITAMIN [Concomitant]
  17. NITROGLYCERIN [Concomitant]
  18. GLUCOSE [Concomitant]

REACTIONS (4)
  - ACTIVATED PARTIAL THROMBOPLASTIN TIME PROLONGED [None]
  - CONDITION AGGRAVATED [None]
  - HAEMATOCRIT DECREASED [None]
  - HAEMATURIA [None]
